FAERS Safety Report 5034558-9 (Version None)
Quarter: 2006Q2

REPORT INFORMATION
  Report Type: 
  Country: None (occurrence: None)
  Receive Date: 20060620
  Receipt Date: 20060609
  Transmission Date: 20061013
  Serious: Yes (Life-Threatening, Hospitalization, Other)
  Sender: FDA-Public Use
  Company Number: SE200606002709

PATIENT
  Age: 23 Year
  Sex: Female

DRUGS (2)
  1. ZYPREXA [Suspect]
     Dosage: 50 TABLETS AT 7.5 MG
     Dates: start: 20060317, end: 20060317
  2. EFFEXOR [Concomitant]

REACTIONS (7)
  - ANXIETY [None]
  - DRUG TOXICITY [None]
  - DYSPNOEA [None]
  - HEART RATE INCREASED [None]
  - INTENTIONAL OVERDOSE [None]
  - LOSS OF CONSCIOUSNESS [None]
  - PALLOR [None]
